FAERS Safety Report 6477069-6 (Version None)
Quarter: 2009Q4

REPORT INFORMATION
  Report Type: 
  Country: None (occurrence: None)
  Receive Date: 20091204
  Receipt Date: 20091204
  Transmission Date: 20100525
  Serious: Yes (Other)
  Sender: FDA-Public Use
  Company Number: None

PATIENT
  Age: 46 Year
  Sex: Female
  Weight: 90.7194 kg

DRUGS (2)
  1. TRI LO SPRINTEC [Suspect]
     Indication: POLYCYSTIC OVARIES
     Dosage: 1 TABLET DAILY PO
     Route: 048
     Dates: start: 20091115, end: 20091201
  2. ORTHO TRI-CYCLEN LO [Suspect]

REACTIONS (16)
  - ABDOMINAL DISCOMFORT [None]
  - ABDOMINAL DISTENSION [None]
  - ABDOMINAL PAIN [None]
  - ABDOMINAL PAIN UPPER [None]
  - ACNE [None]
  - ANXIETY [None]
  - BREAST TENDERNESS [None]
  - CHEST DISCOMFORT [None]
  - CONSTIPATION [None]
  - DEPRESSION [None]
  - DISCOMFORT [None]
  - HEADACHE [None]
  - INSOMNIA [None]
  - PRODUCT SUBSTITUTION ISSUE [None]
  - PRURITUS [None]
  - RENAL DISORDER [None]
